FAERS Safety Report 14336509 (Version 12)
Quarter: 2022Q4

REPORT INFORMATION
  Report Type: Report from Study
  Country: DE (occurrence: DE)
  Receive Date: 20171229
  Receipt Date: 20221019
  Transmission Date: 20230113
  Serious: Yes (Other)
  Sender: FDA-Public Use
  Company Number: DE-ABBVIE-17S-062-2201777-00

PATIENT
  Age: 30 Year
  Sex: Male

DRUGS (22)
  1. NORVIR [Suspect]
     Active Substance: RITONAVIR
     Indication: HIV infection
     Dosage: CUMULATIVE DOSE TO FIRST REACTION: 98658.76 MG?100 MG, QD
     Route: 048
     Dates: start: 20100101
  2. NORVIR [Suspect]
     Active Substance: RITONAVIR
     Indication: HIV infection
     Route: 048
     Dates: end: 2013
  3. NORVIR [Suspect]
     Active Substance: RITONAVIR
     Indication: HIV infection
     Dosage: 100 MILLIGRAM, QD
     Route: 048
     Dates: start: 2013, end: 20160720
  4. PEGASYS [Suspect]
     Active Substance: PEGINTERFERON ALFA-2A
     Indication: Chronic hepatitis C
     Dosage: 180 UG, Q1WK
     Route: 058
     Dates: start: 20120524, end: 20130425
  5. COPEGUS [Suspect]
     Active Substance: RIBAVIRIN
     Indication: Chronic hepatitis C
     Dosage: CUMULATIVE DOSE TO FIRST REACTION: 103473.69 MG?1000 MG, QD
     Route: 048
     Dates: start: 20120524, end: 20120802
  6. COPEGUS [Suspect]
     Active Substance: RIBAVIRIN
     Indication: Chronic hepatitis C
     Dosage: CUMULATIVE DOSE TO FIRST REACTION: 103473.69 MG?800 MG, QD
     Route: 048
     Dates: start: 20120803, end: 20130425
  7. TELAPREVIR [Suspect]
     Active Substance: TELAPREVIR
     Indication: Chronic hepatitis C
     Dosage: 2250 MG, QD
     Route: 048
     Dates: start: 20120524, end: 20120816
  8. TRUVADA [Suspect]
     Active Substance: EMTRICITABINE\TENOFOVIR DISOPROXIL FUMARATE
     Indication: HIV infection
     Dosage: 200 MG, QD
     Route: 048
     Dates: start: 20100101, end: 20160720
  9. REYATAZ [Suspect]
     Active Substance: ATAZANAVIR SULFATE
     Indication: HIV infection
     Dosage: CUMULATIVE DOSE TO FIRST REACTION: 262500 MG?300 MG, QD
     Route: 048
     Dates: start: 20100101, end: 20160720
  10. ATAZANAVIR SULFATE [Suspect]
     Active Substance: ATAZANAVIR SULFATE
     Indication: HIV infection
     Dosage: 1DF=200 UNIT NOS CUMULATIVE DOSE TO FIRST REACTION?262500 MG, 300MG,QD
     Route: 048
     Dates: start: 20100101
  11. ATAZANAVIR SULFATE [Suspect]
     Active Substance: ATAZANAVIR SULFATE
     Indication: HIV infection
     Dosage: 1000 MG, QD
     Route: 048
     Dates: start: 20120524, end: 20120802
  12. ATAZANAVIR SULFATE [Suspect]
     Active Substance: ATAZANAVIR SULFATE
     Indication: HIV infection
     Dosage: 800 MG, QD
     Route: 048
     Dates: start: 20120803, end: 20130425
  13. EMTRICITABINE\TENOFOVIR [Suspect]
     Active Substance: EMTRICITABINE\TENOFOVIR
     Indication: HIV infection
     Dosage: CUMULATIVE DOSE TO FIRST REACTION: 174926.88 MG 200 MG, QD
     Route: 048
     Dates: start: 20100101, end: 20160720
  14. AZITHROMYCIN [Concomitant]
     Active Substance: AZITHROMYCIN
     Indication: Product used for unknown indication
     Dosage: 500 MG, QD
     Route: 065
     Dates: start: 20130603, end: 20130605
  15. ACETYLCYSTEINE [Concomitant]
     Active Substance: ACETYLCYSTEINE
     Indication: Product used for unknown indication
     Dosage: TIME INTERVAL: AS NECESSARY: DOSAGE FORM: UNSPECIFIED
     Route: 065
     Dates: start: 20130314
  16. SUBUTEX [Concomitant]
     Active Substance: BUPRENORPHINE HYDROCHLORIDE
     Indication: Product used for unknown indication
     Dosage: DOSAGE FORM: UNSPECIFIED
     Route: 065
  17. CITALOPRAM [Concomitant]
     Active Substance: CITALOPRAM HYDROBROMIDE
     Indication: Drug dependence
     Dosage: DOSAGE FORM: UNSPECIFIED
     Route: 065
     Dates: start: 20120621
  18. CITALOPRAM [Concomitant]
     Active Substance: CITALOPRAM HYDROBROMIDE
     Indication: Drug dependence
     Dosage: DOSAGE FORM: UNSPECIFIED
     Route: 065
     Dates: start: 20121220, end: 20130601
  19. BETAGALEN [Concomitant]
     Indication: Hepatitis C
     Dosage: UNK
     Route: 065
     Dates: start: 20120605
  20. METAMIZOLE SODIUM [Concomitant]
     Active Substance: METAMIZOLE SODIUM
     Indication: Product used for unknown indication
     Dosage: TIME INTERVAL: AS NECESSARY
     Route: 048
     Dates: start: 20121221
  21. METAMIZOLE SODIUM [Concomitant]
     Active Substance: METAMIZOLE SODIUM
     Indication: Product used for unknown indication
     Route: 065
  22. METAMIZOL [Concomitant]
     Active Substance: METAMIZOLE SODIUM
     Indication: Product used for unknown indication

REACTIONS (22)
  - Drug dependence [Not Recovered/Not Resolved]
  - Vertigo [Recovered/Resolved]
  - Withdrawal syndrome [Not Recovered/Not Resolved]
  - Headache [Recovered/Resolved]
  - Restlessness [Recovered/Resolved]
  - Anaemia [Not Recovered/Not Resolved]
  - Oral herpes [Recovered/Resolved]
  - Incorrect dose administered [Unknown]
  - Depressed mood [Not Recovered/Not Resolved]
  - Impaired healing [Recovered/Resolved]
  - Dry skin [Not Recovered/Not Resolved]
  - Skin irritation [Not Recovered/Not Resolved]
  - Laboratory test abnormal [Unknown]
  - Sinusitis [Recovered/Resolved]
  - Influenza like illness [Recovered/Resolved]
  - Nasopharyngitis [Recovered/Resolved]
  - Pruritus [Not Recovered/Not Resolved]
  - Fatigue [Recovered/Resolved]
  - Nausea [Not Recovered/Not Resolved]
  - Dizziness [Recovered/Resolved]
  - Taste disorder [Not Recovered/Not Resolved]
  - Alanine aminotransferase increased [Not Recovered/Not Resolved]

NARRATIVE: CASE EVENT DATE: 20120524
